FAERS Safety Report 12701744 (Version 1)
Quarter: 2016Q3

REPORT INFORMATION
  Report Type: Spontaneous
  Country: US (occurrence: US)
  Receive Date: 20160831
  Receipt Date: 20160831
  Transmission Date: 20161109
  Serious: No
  Sender: FDA-Public Use
  Company Number: US-JAZZ-2016-US-007363

PATIENT
  Sex: Female

DRUGS (20)
  1. XYREM [Suspect]
     Active Substance: SODIUM OXYBATE
     Dosage: 2.25 G, BID
     Route: 048
     Dates: start: 201411
  2. OVCON [Concomitant]
  3. ELMIRON [Concomitant]
     Active Substance: PENTOSAN POLYSULFATE SODIUM
  4. PROAIR HFA [Concomitant]
     Active Substance: ALBUTEROL SULFATE
  5. NEURONTIN [Concomitant]
     Active Substance: GABAPENTIN
  6. MOTRIN IB [Concomitant]
     Active Substance: IBUPROFEN
  7. PERCOCET [Concomitant]
     Active Substance: ACETAMINOPHEN\OXYCODONE HYDROCHLORIDE
  8. PROMETHAZINE [Concomitant]
     Active Substance: PROMETHAZINE\PROMETHAZINE HYDROCHLORIDE
  9. KLONOPIN [Concomitant]
     Active Substance: CLONAZEPAM
  10. VIIBRYD [Concomitant]
     Active Substance: VILAZODONE HYDROCHLORIDE
  11. KETOROLAC [Concomitant]
     Active Substance: KETOROLAC\KETOROLAC TROMETHAMINE
  12. XYREM [Suspect]
     Active Substance: SODIUM OXYBATE
     Dosage: 3 G, BID
     Route: 048
     Dates: start: 201405, end: 201411
  13. PROVIGIL [Concomitant]
     Active Substance: MODAFINIL
  14. SKELAXIN [Concomitant]
     Active Substance: METAXALONE
  15. TRAMADOL HCL [Concomitant]
     Active Substance: TRAMADOL HYDROCHLORIDE
  16. XYREM [Suspect]
     Active Substance: SODIUM OXYBATE
     Indication: NARCOLEPSY
     Dosage: 2.25 G, BID
     Route: 048
     Dates: start: 201404, end: 201405
  17. TRAZODONE [Concomitant]
     Active Substance: TRAZODONE HYDROCHLORIDE
  18. LAMICTAL [Concomitant]
     Active Substance: LAMOTRIGINE
  19. BENADRYL ALLERGY [Concomitant]
     Active Substance: DIPHENHYDRAMINE HYDROCHLORIDE
  20. HYDROXYZINE HCL [Concomitant]
     Active Substance: HYDROXYZINE HYDROCHLORIDE

REACTIONS (1)
  - Hand fracture [Unknown]
